FAERS Safety Report 19888947 (Version 3)
Quarter: 2021Q4

REPORT INFORMATION
  Report Type: Report from Study
  Country: BE (occurrence: BE)
  Receive Date: 20210928
  Receipt Date: 20211007
  Transmission Date: 20220303
  Serious: Yes (Hospitalization)
  Sender: FDA-Public Use
  Company Number: NVSC2021BE216283

PATIENT
  Age: 71 Year
  Sex: Female

DRUGS (16)
  1. SPARTALIZUMAB [Suspect]
     Active Substance: SPARTALIZUMAB
     Indication: Colorectal cancer
     Dosage: 400 MG, Q4W
     Route: 042
     Dates: start: 20210915
  2. RINETERKIB [Suspect]
     Active Substance: RINETERKIB
     Indication: Colorectal cancer
     Dosage: 100 MG, QD
     Route: 048
     Dates: start: 20210915, end: 20210921
  3. RINETERKIB [Suspect]
     Active Substance: RINETERKIB
     Dosage: 100 MG, QD
     Route: 048
     Dates: start: 20210930
  4. DABRAFENIB [Suspect]
     Active Substance: DABRAFENIB
     Indication: Colorectal cancer
     Dosage: 150 MG, BID
     Route: 048
     Dates: start: 20210915, end: 20210921
  5. DABRAFENIB [Suspect]
     Active Substance: DABRAFENIB
     Dosage: 150 MG, BID
     Route: 048
     Dates: start: 20210930
  6. CLEEN [Concomitant]
     Indication: Biopsy
     Dosage: UNK
     Route: 065
     Dates: start: 20210908, end: 20210908
  7. ENOXAPARIN SODIUM [Concomitant]
     Active Substance: ENOXAPARIN SODIUM
     Indication: Thrombosis prophylaxis
     Dosage: UNK
     Route: 065
     Dates: start: 20210925
  8. ACTOSOLV [Concomitant]
     Indication: Catheter management
     Dosage: UNK
     Route: 065
     Dates: start: 20210923, end: 20210923
  9. IMODIUM [Concomitant]
     Active Substance: LOPERAMIDE HYDROCHLORIDE
     Indication: Prophylaxis against diarrhoea
     Dosage: UNK
     Route: 065
     Dates: start: 20210223, end: 20210915
  10. XARELTO [Concomitant]
     Active Substance: RIVAROXABAN
     Indication: Thrombosis prophylaxis
     Dosage: UNK
     Route: 065
     Dates: start: 20210301, end: 20210913
  11. MEDROL [Concomitant]
     Active Substance: METHYLPREDNISOLONE
     Indication: Abdominal pain
     Dosage: UNK
     Route: 065
     Dates: start: 20210628, end: 20210921
  12. FENTANYL [Concomitant]
     Active Substance: FENTANYL
     Indication: Abdominal pain
     Dosage: UNK
     Route: 065
     Dates: start: 20201201
  13. ACETAMINOPHEN [Concomitant]
     Active Substance: ACETAMINOPHEN
     Indication: Abdominal pain
     Dosage: UNK
     Route: 065
     Dates: start: 20200224
  14. LORMETAZEPAM [Concomitant]
     Active Substance: LORMETAZEPAM
     Indication: Prophylaxis
     Dosage: UNK
     Route: 065
     Dates: start: 20210915
  15. OXYCODONE HYDROCHLORIDE [Concomitant]
     Active Substance: OXYCODONE HYDROCHLORIDE
     Indication: Abdominal pain
     Dosage: UNK
     Route: 065
     Dates: start: 20210224
  16. PARACETAMOL FRESENIUS [Concomitant]
     Indication: Anal haemorrhage
     Dosage: UNK
     Route: 065
     Dates: start: 20210909, end: 20210911

REACTIONS (1)
  - General physical health deterioration [Not Recovered/Not Resolved]

NARRATIVE: CASE EVENT DATE: 20210922
